FAERS Safety Report 25964891 (Version 1)
Quarter: 2025Q4

REPORT INFORMATION
  Report Type: Spontaneous
  Country: EU (occurrence: None)
  Receive Date: 20251027
  Receipt Date: 20251027
  Transmission Date: 20260118
  Serious: No
  Sender: UCB
  Company Number: EU-UCBSA-2025067289

PATIENT
  Age: 65 Year

DRUGS (1)
  1. NEUPRO [Suspect]
     Active Substance: ROTIGOTINE
     Indication: Restless legs syndrome
     Dosage: 4 MILLIGRAM, ONCE DAILY (QD)

REACTIONS (2)
  - Product adhesion issue [Unknown]
  - Incorrect dose administered [Unknown]
